FAERS Safety Report 4436501-X (Version None)
Quarter: 2004Q3

REPORT INFORMATION
  Report Type: 
  Country: None (occurrence: None)
  Receive Date: 20040830
  Receipt Date: 20040601
  Transmission Date: 20050211
  Serious: No
  Sender: FDA-Public Use
  Company Number: US-BRISTOL-MYERS SQUIBB COMPANY-12601993

PATIENT
  Age: 42 Year
  Sex: Male
  Weight: 91 kg

DRUGS (4)
  1. ABILIFY [Suspect]
     Indication: SCHIZOAFFECTIVE DISORDER
     Dosage: INITIAL DOSE: 2.5 MG/DAY, INC TO 15 MG/DAY, DECREASED ON 29-MAY-2004 TO 12.5 MG/DAY
     Route: 048
     Dates: start: 20040309
  2. OLANZAPINE [Concomitant]
  3. LITHIUM [Concomitant]
  4. COGENTIN [Concomitant]

REACTIONS (1)
  - JAUNDICE [None]
